FAERS Safety Report 17898511 (Version 2)
Quarter: 2020Q4

REPORT INFORMATION
  Report Type: Spontaneous
  Country: DE (occurrence: DE)
  Receive Date: 20200615
  Receipt Date: 20201014
  Transmission Date: 20210113
  Serious: Yes (Hospitalization)
  Sender: FDA-Public Use
  Company Number: DE-JNJFOC-20200608142

PATIENT
  Age: 50 Year
  Sex: Female

DRUGS (6)
  1. STELARA [Suspect]
     Active Substance: USTEKINUMAB
     Indication: CROHN^S DISEASE
     Route: 058
  2. ESTRADIOL. [Concomitant]
     Active Substance: ESTRADIOL
  3. BUDESONIDE. [Concomitant]
     Active Substance: BUDESONIDE
  4. HYDROCORTISONE. [Concomitant]
     Active Substance: HYDROCORTISONE
  5. MESALAZINE [Concomitant]
     Active Substance: MESALAMINE
  6. DHEA [Concomitant]
     Active Substance: PRASTERONE

REACTIONS (1)
  - Reversible cerebral vasoconstriction syndrome [Recovered/Resolved]

NARRATIVE: CASE EVENT DATE: 20180923
